FAERS Safety Report 18830851 (Version 3)
Quarter: 2021Q3

REPORT INFORMATION
  Report Type: Report from Study
  Country: US (occurrence: US)
  Receive Date: 20210203
  Receipt Date: 20210910
  Transmission Date: 20211014
  Serious: No
  Sender: FDA-Public Use
  Company Number: NVSC2021US017048

PATIENT
  Age: 26 Year
  Sex: Female

DRUGS (1)
  1. KESIMPTA [Suspect]
     Active Substance: OFATUMUMAB
     Indication: PRODUCT USED FOR UNKNOWN INDICATION
     Dosage: 20 MG, OTHER (3 LOADING DOSES TAKEN IN WEEKS 0,1,2. WEEK 3 IS A BREAK. WEEK 4 IS FIRST MONTHLY MAINT
     Route: 058
     Dates: start: 20210122, end: 20210122

REACTIONS (3)
  - Device issue [Unknown]
  - Pain [Unknown]
  - Injection site pain [Unknown]

NARRATIVE: CASE EVENT DATE: 20210122
